FAERS Safety Report 6551447-9 (Version None)
Quarter: 2010Q1

REPORT INFORMATION
  Report Type: 
  Country: None (occurrence: None)
  Receive Date: 20100120
  Receipt Date: 20100107
  Transmission Date: 20100710
  Serious: Yes (Hospitalization, Disabling)
  Sender: FDA-Public Use
  Company Number: 230177J10USA

PATIENT
  Age: 66 Year
  Sex: Female

DRUGS (1)
  1. REBIF [Suspect]
     Indication: MULTIPLE SCLEROSIS
     Dosage: 44 MCG, 3 IN 1 WEEKS, SUBCUTANEOUS
     Route: 058
     Dates: start: 20030925

REACTIONS (6)
  - ARTHROPATHY [None]
  - BURSITIS [None]
  - INJECTION SITE RASH [None]
  - OEDEMA [None]
  - PNEUMONIA [None]
  - SCIATICA [None]
